FAERS Safety Report 6146491-X (Version None)
Quarter: 2009Q2

REPORT INFORMATION
  Report Type: 
  Country: None (occurrence: None)
  Receive Date: 20090407
  Receipt Date: 20090331
  Transmission Date: 20091009
  Serious: Yes (Hospitalization)
  Sender: FDA-Public Use
  Company Number: B0567769A

PATIENT
  Sex: Female

DRUGS (7)
  1. DEROXAT [Suspect]
     Indication: DEPRESSION
     Dosage: 1UNIT PER DAY
     Route: 048
     Dates: start: 19920101
  2. DOMPERIDONE [Suspect]
     Indication: NAUSEA
     Dosage: 20MG TWICE PER DAY
     Route: 048
     Dates: start: 20090125, end: 20090203
  3. SPIRAMYCINE [Suspect]
     Indication: UPPER RESPIRATORY TRACT INFECTION
     Dosage: 2UNIT PER DAY
     Route: 048
     Dates: start: 20080101, end: 20090103
  4. NEXEN [Suspect]
     Indication: PAIN
     Route: 065
     Dates: end: 20090203
  5. ALPRAZOLAM [Suspect]
     Indication: ANXIETY
     Dosage: .5MG PER DAY
     Route: 048
     Dates: start: 19920101
  6. TELMISARTAN [Suspect]
     Dosage: 80MG PER DAY
     Route: 048
     Dates: start: 19930101
  7. EUPRESSYL [Suspect]
     Dosage: 30MG TWICE PER DAY
     Route: 048
     Dates: start: 19930101

REACTIONS (3)
  - PYELONEPHRITIS ACUTE [None]
  - PYREXIA [None]
  - URINARY RETENTION [None]
